FAERS Safety Report 19142489 (Version 3)
Quarter: 2022Q3

REPORT INFORMATION
  Report Type: Spontaneous
  Country: GB (occurrence: GB)
  Receive Date: 20210416
  Receipt Date: 20220715
  Transmission Date: 20221027
  Serious: Yes (Life-Threatening, Hospitalization, Other)
  Sender: FDA-Public Use
  Company Number: GB-MEDREICH PLC-MHP202103-000742

PATIENT
  Age: 55 Year
  Sex: Male
  Weight: 85 kg

DRUGS (14)
  1. GABAPENTIN [Suspect]
     Active Substance: GABAPENTIN
     Indication: Nerve injury
     Dosage: 300 MILLIGRAM
     Route: 065
  2. GABAPENTIN [Suspect]
     Active Substance: GABAPENTIN
     Indication: Spinal instability
     Dosage: 300 MILLIGRAM, ONCE A DAY
     Route: 048
     Dates: start: 2017
  3. GABAPENTIN [Suspect]
     Active Substance: GABAPENTIN
     Dosage: 300 MILLIGRAM, 3 TIMES A DAY
     Route: 048
     Dates: start: 20171002
  4. GABAPENTIN [Suspect]
     Active Substance: GABAPENTIN
     Dosage: 600 MILLIGRAM
     Route: 065
     Dates: start: 20210111, end: 20211114
  5. GABAPENTIN [Suspect]
     Active Substance: GABAPENTIN
     Dosage: 400 MILLIGRAM
     Route: 065
     Dates: start: 20210112
  6. GABAPENTIN [Suspect]
     Active Substance: GABAPENTIN
     Dosage: 400 MILLIGRAM
     Route: 065
     Dates: start: 20211114, end: 20211201
  7. GABAPENTIN [Suspect]
     Active Substance: GABAPENTIN
     Dosage: 200 MILLIGRAM
     Route: 065
     Dates: start: 20211201, end: 20211214
  8. GABAPENTIN [Suspect]
     Active Substance: GABAPENTIN
     Dosage: 100 MILLIGRAM
     Route: 065
     Dates: start: 20211214, end: 20220109
  9. GABAPENTIN [Suspect]
     Active Substance: GABAPENTIN
     Dosage: 200 MILLIGRAM
     Route: 065
     Dates: start: 20211214
  10. GABAPENTIN [Suspect]
     Active Substance: GABAPENTIN
     Dosage: 100 MILLIGRAM
     Route: 065
     Dates: start: 20220109, end: 20220109
  11. DIAZEPAM [Concomitant]
     Active Substance: DIAZEPAM
     Indication: Back pain
     Dosage: 2 MILLIGRAM
     Route: 065
     Dates: start: 20110101
  12. LANSOPRAZOLE [Concomitant]
     Active Substance: LANSOPRAZOLE
     Indication: Product used for unknown indication
     Dosage: 15 MILLIGRAM
     Route: 065
     Dates: start: 20000101
  13. LISINOPRIL [Concomitant]
     Active Substance: LISINOPRIL
     Indication: Hypertension
     Dosage: 20 MILLIGRAM
     Route: 065
     Dates: start: 20110101
  14. THYROXINE [Concomitant]
     Active Substance: LEVOTHYROXINE
     Indication: Thyroxine decreased
     Dosage: 20 MILLIGRAM
     Route: 065

REACTIONS (24)
  - Pain threshold decreased [Recovered/Resolved]
  - Mental disorder [Unknown]
  - Hot flush [Unknown]
  - Violence-related symptom [Unknown]
  - Deafness [Unknown]
  - Hyperacusis [Unknown]
  - Depressed mood [Unknown]
  - Paranoia [Recovered/Resolved]
  - Feeling of body temperature change [Unknown]
  - Appendicitis [Unknown]
  - Photopsia [Unknown]
  - Tunnel vision [Unknown]
  - Decreased appetite [Unknown]
  - Panic attack [Unknown]
  - Aggression [Not Recovered/Not Resolved]
  - Restlessness [Unknown]
  - Muscle twitching [Unknown]
  - Headache [Unknown]
  - Nausea [Unknown]
  - Anxiety [Not Recovered/Not Resolved]
  - Palpitations [Unknown]
  - Suicidal ideation [Unknown]
  - Depression [Unknown]
  - Pruritus [Unknown]

NARRATIVE: CASE EVENT DATE: 20210318
